FAERS Safety Report 17584007 (Version 2)
Quarter: 2020Q1

REPORT INFORMATION
  Report Type: Spontaneous
  Country: US (occurrence: US)
  Receive Date: 20200326
  Receipt Date: 20200327
  Transmission Date: 20200409
  Serious: No
  Sender: FDA-Public Use
  Company Number: US-009507513-2003USA009398

PATIENT
  Sex: Female

DRUGS (1)
  1. NEXPLANON [Suspect]
     Active Substance: ETONOGESTREL
     Indication: CONTRACEPTION
     Dosage: 68 MILLIGRAM (MG) (1 ROD), EVERY 3 YEARS
     Route: 059
     Dates: start: 202002

REACTIONS (2)
  - Implant site infection [Recovering/Resolving]
  - Device expulsion [Recovered/Resolved]

NARRATIVE: CASE EVENT DATE: 2020
